FAERS Safety Report 16379671 (Version 1)
Quarter: 2019Q2

REPORT INFORMATION
  Report Type: Spontaneous
  Country: PT (occurrence: PT)
  Receive Date: 20190531
  Receipt Date: 20190531
  Transmission Date: 20190711
  Serious: Yes (Hospitalization, Other)
  Sender: FDA-Public Use
  Company Number: PT-MYLANLABS-2019M1050690

PATIENT
  Age: 78 Year
  Sex: Male

DRUGS (1)
  1. CIPROFLOXACIN. [Suspect]
     Active Substance: CIPROFLOXACIN
     Indication: URINARY TRACT INFECTION
     Dosage: UNK

REACTIONS (9)
  - Fatigue [Recovering/Resolving]
  - Pyrexia [Recovering/Resolving]
  - Rash generalised [Recovering/Resolving]
  - Odynophagia [Recovering/Resolving]
  - Rash macular [Recovering/Resolving]
  - Pharyngeal erythema [Recovering/Resolving]
  - Cough [Recovered/Resolved]
  - Mouth ulceration [Recovering/Resolving]
  - Toxic epidermal necrolysis [Recovering/Resolving]
